FAERS Safety Report 9905539 (Version 2)
Quarter: 2014Q1

REPORT INFORMATION
  Report Type: Spontaneous
  Country: US (occurrence: US)
  Receive Date: 20140218
  Receipt Date: 20140310
  Transmission Date: 20141002
  Serious: Yes (Other)
  Sender: FDA-Public Use
  Company Number: US-GLAXOSMITHKLINE-A1061397A

PATIENT
  Age: 27 Year
  Sex: Female

DRUGS (1)
  1. PROMACTA [Suspect]
     Indication: INTERSTITIAL LUNG DISEASE
     Dosage: 50MG ALTERNATE DAYS
     Route: 048
     Dates: start: 20131101

REACTIONS (1)
  - Immunoglobulin therapy [Unknown]
